FAERS Safety Report 4335856-4 (Version None)
Quarter: 2004Q2

REPORT INFORMATION
  Report Type: 
  Country: None (occurrence: None)
  Receive Date: 20040409
  Receipt Date: 20040405
  Transmission Date: 20050107
  Serious: Yes (Other)
  Sender: FDA-Public Use
  Company Number: PHBS2004BR04698

PATIENT
  Age: 45 Year
  Sex: Male

DRUGS (2)
  1. FORASEQ [Suspect]
     Indication: ASTHMA
     Dosage: ONCE EVERY MONTH
     Dates: start: 20030401
  2. DUOVENT [Concomitant]
     Indication: ASTHMA
     Dosage: TID

REACTIONS (1)
  - WEIGHT DECREASED [None]
